FAERS Safety Report 4535327-6 (Version None)
Quarter: 2004Q4

REPORT INFORMATION
  Report Type: 
  Country: None (occurrence: None)
  Receive Date: 20041214
  Receipt Date: 20041112
  Transmission Date: 20050328
  Serious: Yes (Other)
  Sender: FDA-Public Use
  Company Number: 2004093512

PATIENT
  Age: 52 Year
  Sex: Male
  Weight: 98.8842 kg

DRUGS (1)
  1. BEXTRA [Suspect]
     Indication: PAIN
     Dosage: 40 MG (20 MG, 2 IN 1 D), ORAL
     Route: 048

REACTIONS (4)
  - CHEST PAIN [None]
  - GASTRIC DISORDER [None]
  - PAIN [None]
  - SOMNOLENCE [None]
